FAERS Safety Report 7496161-0 (Version None)
Quarter: 2011Q2

REPORT INFORMATION
  Report Type: 
  Country: None (occurrence: None)
  Receive Date: 20110523
  Receipt Date: 20110511
  Transmission Date: 20111010
  Serious: Yes (Other)
  Sender: FDA-Public Use
  Company Number: PHFR2011GB02920

PATIENT
  Sex: Male

DRUGS (1)
  1. CLOZARIL [Suspect]
     Indication: SCHIZOPHRENIA
     Dosage: 300 MG, QD
     Route: 048
     Dates: start: 20110404

REACTIONS (5)
  - ASTHENIA [None]
  - DIZZINESS [None]
  - FALL [None]
  - EOSINOPHIL COUNT INCREASED [None]
  - CIRCULATORY COLLAPSE [None]
